FAERS Safety Report 22763907 (Version 4)
Quarter: 2025Q2

REPORT INFORMATION
  Report Type: Report from Study
  Country: US (occurrence: US)
  Receive Date: 20230730
  Receipt Date: 20250612
  Transmission Date: 20250716
  Serious: Yes (Hospitalization)
  Sender: ABBVIE
  Company Number: US-ABBVIE-5343642

PATIENT
  Age: 66 Year
  Sex: Female

DRUGS (2)
  1. IMBRUVICA [Suspect]
     Active Substance: IBRUTINIB
     Indication: Chronic lymphocytic leukaemia
     Dosage: LAST ADMIN DATE: 2021
     Route: 048
     Dates: start: 202106
  2. IMBRUVICA [Suspect]
     Active Substance: IBRUTINIB
     Indication: Chronic lymphocytic leukaemia
     Route: 048
     Dates: start: 20210901

REACTIONS (6)
  - Migraine [Unknown]
  - Nausea [Unknown]
  - Nasopharyngitis [Not Recovered/Not Resolved]
  - Stress [Unknown]
  - Depression [Unknown]
  - Thinking abnormal [Unknown]

NARRATIVE: CASE EVENT DATE: 20230723
